FAERS Safety Report 19535473 (Version 1)
Quarter: 2021Q3

REPORT INFORMATION
  Report Type: Spontaneous
  Country: AU (occurrence: AU)
  Receive Date: 20210713
  Receipt Date: 20210713
  Transmission Date: 20211014
  Serious: Yes (Other)
  Sender: FDA-Public Use
  Company Number: AU-009507513-2107AUS004006

PATIENT
  Age: 84 Year
  Sex: Male

DRUGS (6)
  1. COBIMETINIB. [Suspect]
     Active Substance: COBIMETINIB
     Indication: METASTATIC MALIGNANT MELANOMA
     Route: 065
  2. PREDNISOLONE. [Suspect]
     Active Substance: PREDNISOLONE
     Indication: METASTATIC MALIGNANT MELANOMA
     Route: 065
  3. KEYTRUDA [Suspect]
     Active Substance: PEMBROLIZUMAB
     Indication: METASTASES TO CHEST WALL
     Route: 065
  4. VEMURAFENIB. [Suspect]
     Active Substance: VEMURAFENIB
     Indication: METASTATIC MALIGNANT MELANOMA
     Route: 065
  5. IPILIMUMAB [Suspect]
     Active Substance: IPILIMUMAB
     Indication: METASTATIC MALIGNANT MELANOMA
     Route: 065
  6. AZATHIOPRINE. [Suspect]
     Active Substance: AZATHIOPRINE
     Indication: METASTATIC MALIGNANT MELANOMA
     Route: 065

REACTIONS (5)
  - Malignant neoplasm progression [Unknown]
  - Gastroenteritis [Unknown]
  - Metastatic malignant melanoma [Unknown]
  - Toxicity to various agents [Unknown]
  - Metastases to chest wall [Unknown]

NARRATIVE: CASE EVENT DATE: 201703
